FAERS Safety Report 8135280-2 (Version None)
Quarter: 2012Q1

REPORT INFORMATION
  Report Type: 
  Country: None (occurrence: None)
  Receive Date: 20120214
  Receipt Date: 20120202
  Transmission Date: 20120608
  Serious: Yes (Other)
  Sender: FDA-Public Use
  Company Number: JP-UCBSA-048425

PATIENT
  Age: 43 Year
  Sex: Male
  Weight: 64 kg

DRUGS (9)
  1. KEPPRA [Suspect]
     Indication: EPILEPSY
     Route: 048
  2. DEPAKENE [Concomitant]
     Indication: EPILEPSY
     Dosage: DAILY DOSE:200 MG
     Route: 048
  3. TEGRETOL [Concomitant]
     Dosage: UNKNOWN DOSAGE
     Route: 048
  4. TOPIRAMATE [Concomitant]
     Dosage: UNKNOWN DOSAGE
     Route: 048
  5. PHENYTOIN SODIUM CAP [Concomitant]
     Dosage: UNKNOWN DOSAGE
  6. CLONAZEPAM [Concomitant]
     Indication: EPILEPSY
     Dosage: DAILY DOSE: 8 MG
     Route: 048
  7. PHENYTOIN [Concomitant]
     Indication: EPILEPSY
     Dosage: DAILY DOSE: 25 MG
     Route: 048
  8. KEPPRA [Suspect]
     Route: 048
     Dates: start: 20111219, end: 20111219
  9. NITRAZEPAM [Concomitant]
     Dosage: UNKNOWN DOSAGE
     Route: 048

REACTIONS (3)
  - SOMNOLENCE [None]
  - CONVULSION [None]
  - HYPOTENSION [None]
